FAERS Safety Report 6332781-4 (Version None)
Quarter: 2009Q3

REPORT INFORMATION
  Report Type: 
  Country: None (occurrence: None)
  Receive Date: 20090828
  Receipt Date: 20090820
  Transmission Date: 20100115
  Serious: Yes (Other)
  Sender: FDA-Public Use
  Company Number: B0589098A

PATIENT
  Age: 65 Year
  Sex: Female

DRUGS (2)
  1. AVANDAMET [Suspect]
     Route: 048
     Dates: start: 20051001, end: 20090501
  2. UNSPECIFIED MEDICATIONS [Concomitant]

REACTIONS (3)
  - HIP FRACTURE [None]
  - OSTEOPENIA [None]
  - WRIST FRACTURE [None]
